FAERS Safety Report 9628886 (Version 1)
Quarter: 2013Q4

REPORT INFORMATION
  Report Type: Spontaneous
  Country: US (occurrence: US)
  Receive Date: 20131017
  Receipt Date: 20131017
  Transmission Date: 20140711
  Serious: No
  Sender: FDA-Public Use
  Company Number: US-BAYER-2013-125719

PATIENT
  Age: 66 Year
  Sex: Female
  Weight: 95 kg

DRUGS (2)
  1. ALEVE CAPLET [Suspect]
     Indication: MYALGIA
     Dosage: 2 DF, UNK
     Route: 048
     Dates: start: 2009, end: 20131013
  2. BAYER ASPIRIN REGIMEN ADULT LOW STRENGTH [Concomitant]

REACTIONS (3)
  - Urticaria [Not Recovered/Not Resolved]
  - Pruritus generalised [Not Recovered/Not Resolved]
  - Incorrect drug administration duration [None]
